FAERS Safety Report 17978678 (Version 1)
Quarter: 2020Q3

REPORT INFORMATION
  Report Type: Spontaneous
  Country: HR (occurrence: HR)
  Receive Date: 20200703
  Receipt Date: 20200703
  Transmission Date: 20201103
  Serious: Yes (Life-Threatening, Hospitalization, Other)
  Sender: FDA-Public Use
  Company Number: HR-TEVA-2020-HR-1794599

PATIENT
  Age: 40 Year
  Sex: Male

DRUGS (1)
  1. SUMAMED [Suspect]
     Active Substance: AZITHROMYCIN ANHYDROUS
     Indication: INFLAMMATION
     Dosage: 3,  500MG
     Route: 048
     Dates: start: 2020, end: 2020

REACTIONS (7)
  - Hypertension [Recovering/Resolving]
  - Diarrhoea [Recovered/Resolved]
  - Asthenia [Recovering/Resolving]
  - Decreased appetite [Recovering/Resolving]
  - Head discomfort [Recovering/Resolving]
  - Yellow skin [Recovering/Resolving]
  - Weight decreased [Recovering/Resolving]

NARRATIVE: CASE EVENT DATE: 2020
